FAERS Safety Report 5612564-0 (Version None)
Quarter: 2008Q1

REPORT INFORMATION
  Report Type: 
  Country: None (occurrence: None)
  Receive Date: 20080128
  Receipt Date: 20080122
  Transmission Date: 20080703
  Serious: Yes (Other)
  Sender: FDA-Public Use
  Company Number: 2008002049

PATIENT
  Age: 17 Month
  Sex: Male
  Weight: 10.8863 kg

DRUGS (1)
  1. PURELL WITH ALOE (ETHYL ALCOHOL) [Suspect]
     Indication: ANTIBIOTIC PROPHYLAXIS
     Dosage: UNSPECIFIED AMOUNT, 4 TIMES ONLY, OPHTHALMIC
     Route: 047
     Dates: start: 20070714, end: 20080113

REACTIONS (3)
  - ACCIDENTAL EXPOSURE [None]
  - EYE SWELLING [None]
  - HYPERSENSITIVITY [None]
